FAERS Safety Report 4401382-7 (Version None)
Quarter: 2004Q3

REPORT INFORMATION
  Report Type: 
  Country: None (occurrence: None)
  Receive Date: 20040907
  Receipt Date: 20040405
  Transmission Date: 20050211
  Serious: No
  Sender: FDA-Public Use
  Company Number: US-BRISTOL-MYERS SQUIBB COMPANY-12551545

PATIENT
  Age: 61 Year
  Sex: Female
  Weight: 59 kg

DRUGS (4)
  1. COUMADIN [Suspect]
     Indication: ATRIAL FIBRILLATION
     Dosage: DOSAGE: 2-3 MG DAILY
     Route: 048
     Dates: start: 20030901
  2. ATENOLOL [Concomitant]
  3. ESTRACE [Concomitant]
  4. MULTI-VITAMIN [Concomitant]

REACTIONS (2)
  - GLOSSODYNIA [None]
  - HYPOGEUSIA [None]
